FAERS Safety Report 9419591 (Version 1)
Quarter: 2013Q3

REPORT INFORMATION
  Report Type: Spontaneous
  Country: US (occurrence: US)
  Receive Date: 20130725
  Receipt Date: 20130725
  Transmission Date: 20140515
  Serious: Yes (Other)
  Sender: FDA-Public Use
  Company Number: US-PFIZER INC-2013216238

PATIENT
  Age: 26 Year
  Sex: Male

DRUGS (3)
  1. LYRICA [Suspect]
     Indication: FIBROMYALGIA
     Dosage: 250 MG, 2X/DAY
     Route: 048
  2. LYRICA [Suspect]
     Indication: NEURALGIA
  3. KLONOPIN [Concomitant]
     Dosage: UNK

REACTIONS (11)
  - Suicidal ideation [Unknown]
  - Drug abuser [Unknown]
  - Drug dependence [Unknown]
  - Abnormal behaviour [Unknown]
  - Vomiting [Unknown]
  - Insomnia [Unknown]
  - Nausea [Unknown]
  - Headache [Unknown]
  - Anxiety [Unknown]
  - Hyperhidrosis [Unknown]
  - Diarrhoea [Unknown]
